FAERS Safety Report 9432239 (Version 1)
Quarter: 2013Q3

REPORT INFORMATION
  Report Type: Spontaneous
  Country: US (occurrence: None)
  Receive Date: 20130729
  Receipt Date: 20130729
  Transmission Date: 20140515
  Serious: Yes (Other)
  Sender: FDA-Public Use
  Company Number: SYM-2013-06958

PATIENT
  Age: 38 Year
  Sex: Female

DRUGS (4)
  1. XENAZINE [Suspect]
     Indication: HUNTINGTON^S DISEASE
     Route: 048
     Dates: start: 20130711
  2. BUSPAR (BUSPIRONE CHLORIDE) (BUSPIRONE HYDROCHLORIDE) [Concomitant]
  3. CONGENTIN (BENZATROPINE MESILATE) (BENZATROPIN MESILATE) [Concomitant]
  4. HALDOL (HALOPERIDOL) (HALOPERIDOL) [Concomitant]

REACTIONS (3)
  - Depression [None]
  - Hallucination, visual [None]
  - Hallucination, auditory [None]
